FAERS Safety Report 24328901 (Version 1)
Quarter: 2024Q3

REPORT INFORMATION
  Report Type: Spontaneous
  Country: US (occurrence: None)
  Receive Date: 20240917
  Receipt Date: 20240917
  Transmission Date: 20241016
  Serious: Yes (Hospitalization)
  Sender: Public
  Company Number: None

PATIENT
  Age: 83 Year
  Sex: Male
  Weight: 67.6 kg

DRUGS (2)
  1. CEFEPIME [Suspect]
     Active Substance: CEFEPIME HYDROCHLORIDE
     Indication: Multiple-drug resistance
     Dosage: 2 G GRAM(S) TWICE A DAY INTRAVENOUS
     Route: 042
     Dates: start: 20240907, end: 20240911
  2. CEFEPIME [Suspect]
     Active Substance: CEFEPIME HYDROCHLORIDE
     Indication: Urinary tract infection

REACTIONS (3)
  - Neurotoxicity [None]
  - Unresponsive to stimuli [None]
  - Renal failure [None]

NARRATIVE: CASE EVENT DATE: 20240912
